FAERS Safety Report 15953775 (Version 1)
Quarter: 2019Q1

REPORT INFORMATION
  Report Type: Spontaneous
  Country: CN (occurrence: CN)
  Receive Date: 20190212
  Receipt Date: 20190212
  Transmission Date: 20190417
  Serious: Yes (Other)
  Sender: FDA-Public Use
  Company Number: CN-PFIZER INC-2019051823

PATIENT
  Age: 60 Year
  Sex: Female
  Weight: 83.2 kg

DRUGS (3)
  1. VFEND [Suspect]
     Active Substance: VORICONAZOLE
     Indication: ANTIFUNGAL TREATMENT
     Dosage: 6 MG/KG, 2X/DAY
     Route: 041
     Dates: start: 20180218, end: 20180218
  2. VFEND [Suspect]
     Active Substance: VORICONAZOLE
     Dosage: 1.2 MG/KG, 2X/DAY
     Route: 041
     Dates: start: 20180224, end: 20180302
  3. VFEND [Suspect]
     Active Substance: VORICONAZOLE
     Dosage: 2 MG/KG, 2X/DAY
     Route: 041
     Dates: start: 20180219, end: 20180223

REACTIONS (3)
  - Drug level increased [Recovered/Resolved]
  - Vision blurred [Recovered/Resolved]
  - Diplopia [Recovered/Resolved]

NARRATIVE: CASE EVENT DATE: 20180228
